FAERS Safety Report 15267969 (Version 1)
Quarter: 2018Q3

REPORT INFORMATION
  Report Type: Spontaneous
  Country: US (occurrence: US)
  Receive Date: 20180725
  Receipt Date: 20180725
  Transmission Date: 20181010
  Serious: Yes (Other)
  Sender: FDA-Public Use
  Company Number: None

PATIENT
  Age: 29 Year
  Sex: Female
  Weight: 56.25 kg

DRUGS (1)
  1. DOXYCYCLINE. [Suspect]
     Active Substance: DOXYCYCLINE
     Indication: ACNE
     Dates: start: 20180527, end: 20180612

REACTIONS (9)
  - Peripheral swelling [None]
  - Malaise [None]
  - Vision blurred [None]
  - Asthenia [None]
  - Hypoaesthesia [None]
  - Arthralgia [None]
  - Joint swelling [None]
  - Oedema [None]
  - Influenza like illness [None]

NARRATIVE: CASE EVENT DATE: 20180611
